FAERS Safety Report 11876268 (Version 1)
Quarter: 2015Q4

REPORT INFORMATION
  Report Type: Spontaneous
  Country: GB (occurrence: GB)
  Receive Date: 20151229
  Receipt Date: 20151229
  Transmission Date: 20160305
  Serious: Yes (Other)
  Sender: FDA-Public Use
  Company Number: GB-BAUSCH-BL-2015-030466

PATIENT
  Age: 43 Year
  Sex: Female

DRUGS (2)
  1. METRONIDAZOLE. [Suspect]
     Active Substance: METRONIDAZOLE
     Indication: SMEAR CERVIX ABNORMAL
     Route: 048
     Dates: start: 20151127, end: 20151203
  2. DOXYCYCLINE. [Suspect]
     Active Substance: DOXYCYCLINE
     Indication: SMEAR CERVIX ABNORMAL
     Route: 048
     Dates: start: 20151127, end: 20151203

REACTIONS (6)
  - Genital swelling [Not Recovered/Not Resolved]
  - Glossodynia [Not Recovered/Not Resolved]
  - Genital pain [Not Recovered/Not Resolved]
  - Headache [Not Recovered/Not Resolved]
  - Abdominal pain upper [Not Recovered/Not Resolved]
  - Nausea [Not Recovered/Not Resolved]

NARRATIVE: CASE EVENT DATE: 20151027
